FAERS Safety Report 6310046-4 (Version None)
Quarter: 2009Q3

REPORT INFORMATION
  Report Type: 
  Country: None (occurrence: None)
  Receive Date: 20090814
  Receipt Date: 20090810
  Transmission Date: 20100115
  Serious: Yes (Hospitalization)
  Sender: FDA-Public Use
  Company Number: US-GENENTECH-287886

PATIENT

DRUGS (4)
  1. BEVACIZUMAB [Suspect]
     Indication: OVARIAN CANCER RECURRENT
     Dosage: 15 MG/KG, Q21D
     Route: 042
     Dates: start: 20081029
  2. CARBOPLATIN [Concomitant]
     Indication: OVARIAN CANCER RECURRENT
     Dosage: 5 AUC, Q21D
     Route: 042
     Dates: start: 20081029
  3. PACLITAXEL [Concomitant]
     Indication: OVARIAN CANCER RECURRENT
     Dosage: 175 MG/M2, Q21D
     Route: 042
     Dates: start: 20081029
  4. DOCETAXEL [Concomitant]
     Indication: OVARIAN CANCER RECURRENT
     Dosage: 75 MG/M2, Q21D
     Route: 042
     Dates: start: 20081029

REACTIONS (2)
  - EPISTAXIS [None]
  - HAEMOGLOBIN DECREASED [None]
